FAERS Safety Report 11222890 (Version 1)
Quarter: 2015Q2

REPORT INFORMATION
  Report Type: Other
  Country: DK (occurrence: DK)
  Receive Date: 20150626
  Receipt Date: 20150626
  Transmission Date: 20150821
  Serious: Yes (Hospitalization)
  Sender: FDA-Public Use
  Company Number: DK-TAKEDA-2015TUS008297

PATIENT
  Age: 59 Year
  Sex: Male

DRUGS (8)
  1. FELODIPIN [Concomitant]
     Active Substance: FELODIPINE
     Indication: HYPERTENSION
     Dosage: UNK
     Dates: start: 2014
  2. SANDIMMUNE [Concomitant]
     Active Substance: CYCLOSPORINE
     Indication: NEPHROTIC SYNDROME
     Dosage: UNK
     Dates: start: 2009
  3. ADENURIC [Suspect]
     Active Substance: FEBUXOSTAT
     Dosage: 80 MG (80 MG,1 IN 1 D)
     Route: 048
     Dates: start: 2015, end: 20150309
  4. COLCHICINE. [Suspect]
     Active Substance: COLCHICINE
     Indication: GOUTY ARTHRITIS
     Dosage: 1 MG (0.5 MG,2 IN 1 D)
     Route: 048
     Dates: start: 20141230, end: 20150117
  5. COLCHICINE. [Suspect]
     Active Substance: COLCHICINE
     Dosage: 0.5 MG (0.5 MG,1 IN 1 D)
     Route: 048
     Dates: start: 2015, end: 20150309
  6. METOPROLOLSUCCINAT 1 A PHARMA [Concomitant]
     Indication: BLOOD PRESSURE ABNORMAL
     Dosage: UNK
  7. ADENURIC [Suspect]
     Active Substance: FEBUXOSTAT
     Indication: GOUTY ARTHRITIS
     Dosage: 80 MG (80 MG,1 IN 1 D)
     Route: 048
     Dates: start: 20141230, end: 20150117
  8. MICARDIS [Concomitant]
     Active Substance: TELMISARTAN
     Indication: HYPERTENSION
     Dosage: UNK
     Dates: start: 2009

REACTIONS (5)
  - Nausea [Recovered/Resolved]
  - Haemodialysis [Not Recovered/Not Resolved]
  - Vomiting [Recovered/Resolved]
  - Nephropathy [Not Recovered/Not Resolved]
  - Diarrhoea [Recovered/Resolved]

NARRATIVE: CASE EVENT DATE: 2015
